APPROVED DRUG PRODUCT: CHLOR-TRIMETON
Active Ingredient: CHLORPHENIRAMINE MALEATE
Strength: 12MG **Federal Register determination that product was not discontinued or withdrawn for safety or effectiveness reasons**
Dosage Form/Route: TABLET, EXTENDED RELEASE;ORAL
Application: N007638 | Product #002
Applicant: BAYER HEALTHCARE LLC
Approved: Approved Prior to Jan 1, 1982 | RLD: Yes | RS: No | Type: DISCN